FAERS Safety Report 14457051 (Version 1)
Quarter: 2018Q1

REPORT INFORMATION
  Report Type: Spontaneous
  Country: US (occurrence: US)
  Receive Date: 20180130
  Receipt Date: 20180130
  Transmission Date: 20180509
  Serious: Yes (Death)
  Sender: FDA-Public Use
  Company Number: US-TEVA-2018-US-852242

PATIENT
  Sex: Female

DRUGS (1)
  1. GRANIX [Suspect]
     Active Substance: TBO-FILGRASTIM
     Route: 065
     Dates: start: 20170217

REACTIONS (1)
  - Death [Fatal]
